FAERS Safety Report 22587527 (Version 2)
Quarter: 2023Q2

REPORT INFORMATION
  Report Type: Report from Study
  Country: US (occurrence: US)
  Receive Date: 20230612
  Receipt Date: 20230613
  Transmission Date: 20230721
  Serious: Yes (Other)
  Sender: FDA-Public Use
  Company Number: US-ABBVIE-5281164

PATIENT
  Sex: Male

DRUGS (1)
  1. SKYRIZI [Suspect]
     Active Substance: RISANKIZUMAB-RZAA
     Indication: Psoriasis
     Dosage: TIME INTERVAL: 0.08333333 WEEKS: FORM STRENGTH: 150MG
     Route: 058
     Dates: start: 20221116

REACTIONS (3)
  - Follicular lymphoma [Unknown]
  - Hodgkin^s disease [Unknown]
  - Cutaneous lymphoma [Unknown]
